FAERS Safety Report 17783392 (Version 3)
Quarter: 2020Q3

REPORT INFORMATION
  Report Type: Spontaneous
  Country: US (occurrence: US)
  Receive Date: 20200514
  Receipt Date: 20200818
  Transmission Date: 20201102
  Serious: No
  Sender: FDA-Public Use
  Company Number: US-PFIZER INC-2014177822

PATIENT
  Age: 55 Year
  Sex: Female
  Weight: 56.92 kg

DRUGS (1)
  1. LORAZEPAM. [Suspect]
     Active Substance: LORAZEPAM
     Indication: ANXIETY
     Dosage: UNK, 3X/DAY (1?2MG TABLET TAKEN 3 TIMES DAILY)
     Dates: start: 2005

REACTIONS (2)
  - Malaise [Unknown]
  - Drug ineffective [Unknown]
